FAERS Safety Report 4748867-1 (Version None)
Quarter: 2005Q3

REPORT INFORMATION
  Report Type: 
  Country: None (occurrence: None)
  Receive Date: 20050819
  Receipt Date: 20050813
  Transmission Date: 20060218
  Serious: Yes (Hospitalization, Other)
  Sender: FDA-Public Use
  Company Number: JO-GLAXOSMITHKLINE-B0390720A

PATIENT
  Age: 18 Year
  Sex: Male

DRUGS (4)
  1. ZANTAC [Suspect]
     Dosage: 50MG PER DAY
     Route: 042
     Dates: start: 20050812, end: 20050812
  2. FLAGYL [Concomitant]
     Indication: DRUG USE FOR UNKNOWN INDICATION
  3. GENTAMICIN [Concomitant]
     Indication: DRUG USE FOR UNKNOWN INDICATION
  4. CEFTRIAXONE [Concomitant]
     Indication: DRUG USE FOR UNKNOWN INDICATION

REACTIONS (4)
  - ANAPHYLACTIC SHOCK [None]
  - BLOOD PRESSURE DECREASED [None]
  - PHARMACEUTICAL PRODUCT COMPLAINT [None]
  - RASH [None]
